FAERS Safety Report 21202236 (Version 21)
Quarter: 2025Q2

REPORT INFORMATION
  Report Type: Report from Study
  Country: US (occurrence: US)
  Receive Date: 20220811
  Receipt Date: 20250528
  Transmission Date: 20250716
  Serious: Yes (Hospitalization, Other)
  Sender: TAKEDA
  Company Number: US-TAKEDA-2022TUS054462

PATIENT
  Age: 61 Year
  Sex: Female
  Weight: 48 kg

DRUGS (55)
  1. TEDUGLUTIDE [Suspect]
     Active Substance: TEDUGLUTIDE
     Indication: Short-bowel syndrome
     Dosage: UNK UNK, QD
     Dates: start: 20190423
  2. TEDUGLUTIDE [Suspect]
     Active Substance: TEDUGLUTIDE
     Dosage: 0.293 MILLILITER, QD
  3. TEDUGLUTIDE [Suspect]
     Active Substance: TEDUGLUTIDE
     Dosage: 0.242 MILLILITER, QD
  4. TEDUGLUTIDE [Suspect]
     Active Substance: TEDUGLUTIDE
     Dosage: 0.242 MILLILITER, QD
  5. TEDUGLUTIDE [Suspect]
     Active Substance: TEDUGLUTIDE
     Dosage: 0.242 MILLILITER, QD
  6. TEDUGLUTIDE [Suspect]
     Active Substance: TEDUGLUTIDE
     Dosage: 0.242 MILLILITER, QD
  7. TEDUGLUTIDE [Suspect]
     Active Substance: TEDUGLUTIDE
     Dosage: 0.242 MILLILITER, QD
  8. TEDUGLUTIDE [Suspect]
     Active Substance: TEDUGLUTIDE
     Dosage: 0.242 MILLILITER, QD
  9. TEDUGLUTIDE [Suspect]
     Active Substance: TEDUGLUTIDE
     Dosage: 2.42 MILLIGRAM, QD
  10. TEDUGLUTIDE [Suspect]
     Active Substance: TEDUGLUTIDE
     Dosage: 2.42 MILLIGRAM, QD
  11. TEDUGLUTIDE [Suspect]
     Active Substance: TEDUGLUTIDE
  12. TEDUGLUTIDE [Suspect]
     Active Substance: TEDUGLUTIDE
     Dosage: 2.42 MILLIGRAM, QD
  13. TEDUGLUTIDE [Suspect]
     Active Substance: TEDUGLUTIDE
     Dosage: 2.42 MILLIGRAM, QD
  14. TEDUGLUTIDE [Suspect]
     Active Substance: TEDUGLUTIDE
     Dosage: 2.42 MILLIGRAM, QD
  15. TEDUGLUTIDE [Suspect]
     Active Substance: TEDUGLUTIDE
  16. TEDUGLUTIDE [Suspect]
     Active Substance: TEDUGLUTIDE
  17. TEDUGLUTIDE [Suspect]
     Active Substance: TEDUGLUTIDE
     Dosage: 0.242 MILLILITER, QD
  18. TEDUGLUTIDE [Suspect]
     Active Substance: TEDUGLUTIDE
  19. TEDUGLUTIDE [Suspect]
     Active Substance: TEDUGLUTIDE
     Dosage: 0.242 MILLILITER, QD
  20. CHOLESTYRAMINE [Concomitant]
     Active Substance: CHOLESTYRAMINE
  21. HYOSCYAMINE SULFATE [Concomitant]
     Active Substance: HYOSCYAMINE SULFATE
  22. DELTASONE [Concomitant]
     Active Substance: PREDNISONE
  23. NEXIUM [Concomitant]
     Active Substance: ESOMEPRAZOLE MAGNESIUM
  24. CLARITIN [Concomitant]
     Active Substance: LORATADINE
  25. CREON [Concomitant]
     Active Substance: PANCRELIPASE AMYLASE\PANCRELIPASE LIPASE\PANCRELIPASE PROTEASE
  26. XANAX [Concomitant]
     Active Substance: ALPRAZOLAM
  27. VITAMIN D [Concomitant]
     Active Substance: VITAMIN D NOS
  28. CALCIUM [Concomitant]
     Active Substance: CALCIUM
  29. BETA CAROTENE [Concomitant]
     Active Substance: BETA CAROTENE
  30. POTASSIUM [Concomitant]
     Active Substance: POTASSIUM
  31. VITAMIN C [Concomitant]
     Active Substance: ASCORBIC ACID
  32. VITAMIN B COMPLEX [Concomitant]
     Active Substance: CYANOCOBALAMIN\DEXPANTHENOL\NIACINAMIDE\PYRIDOXINE HYDROCHLORIDE\RIBOFLAVIN 5^-PHOSPHATE SODIUM\THIA
  33. LOVENOX [Concomitant]
     Active Substance: ENOXAPARIN SODIUM
  34. ZOFRAN [Concomitant]
     Active Substance: ONDANSETRON HYDROCHLORIDE
  35. PREMARIN [Concomitant]
     Active Substance: ESTROGENS, CONJUGATED
  36. LYSINE [Concomitant]
     Active Substance: LYSINE
  37. EPINEPHRINE [Concomitant]
     Active Substance: EPINEPHRINE
  38. POTASSIUM CITRATE [Concomitant]
     Active Substance: POTASSIUM CITRATE
  39. SELENIUM [Concomitant]
     Active Substance: SELENIUM
  40. LOPERAMIDE [Concomitant]
     Active Substance: LOPERAMIDE
  41. LOMOTIL [Concomitant]
     Active Substance: ATROPINE SULFATE\DIPHENOXYLATE HYDROCHLORIDE
  42. TRAMADOL HCL [Concomitant]
     Active Substance: TRAMADOL HYDROCHLORIDE
  43. MAGNESIUM OXIDE [Concomitant]
     Active Substance: MAGNESIUM OXIDE
  44. GABAPENTIN [Concomitant]
     Active Substance: GABAPENTIN
  45. WARFARIN SODIUM [Concomitant]
     Active Substance: WARFARIN SODIUM
  46. PREDNISONE [Concomitant]
     Active Substance: PREDNISONE
  47. SCOPOLAMINE [Concomitant]
     Active Substance: SCOPOLAMINE
  48. ERYTHROMYCIN [Concomitant]
     Active Substance: ERYTHROMYCIN
  49. REGLAN [Concomitant]
     Active Substance: METOCLOPRAMIDE HYDROCHLORIDE
  50. SANDOSTATIN [Concomitant]
     Active Substance: OCTREOTIDE ACETATE
  51. VOQUEZNA [Concomitant]
     Active Substance: VONOPRAZAN FUMARATE
  52. VOQUEZNA [Concomitant]
     Active Substance: VONOPRAZAN FUMARATE
  53. PAXIL [Concomitant]
     Active Substance: PAROXETINE HYDROCHLORIDE
  54. ALOSETRON HYDROCHLORIDE [Concomitant]
     Active Substance: ALOSETRON HYDROCHLORIDE
  55. Vitamin K2 (MK 7) with nattokinase [Concomitant]

REACTIONS (31)
  - Kidney infection [Recovering/Resolving]
  - Pain [Not Recovered/Not Resolved]
  - Confusional state [Not Recovered/Not Resolved]
  - Nephrolithiasis [Unknown]
  - Neoplasm malignant [Unknown]
  - Polymyalgia rheumatica [Unknown]
  - Liver disorder [Unknown]
  - Pancreatic disorder [Unknown]
  - Weight decreased [Unknown]
  - Diarrhoea [Recovering/Resolving]
  - Hyperhidrosis [Unknown]
  - Muscle injury [Unknown]
  - Renal disorder [Unknown]
  - Illness [Unknown]
  - Weight fluctuation [Unknown]
  - Drug ineffective [Unknown]
  - Injury associated with device [Unknown]
  - Paraesthesia [Unknown]
  - Feeling abnormal [Unknown]
  - Weight gain poor [Unknown]
  - Back disorder [Unknown]
  - Product use in unapproved indication [Unknown]
  - Product dose omission issue [Unknown]
  - Needle issue [Unknown]
  - Head injury [Unknown]
  - Fall [Unknown]
  - Product use issue [Unknown]
  - Product reconstitution quality issue [Unknown]
  - Appetite disorder [Not Recovered/Not Resolved]
  - Nausea [Unknown]
  - Decreased appetite [Not Recovered/Not Resolved]

NARRATIVE: CASE EVENT DATE: 20190423
